FAERS Safety Report 26152238 (Version 2)
Quarter: 2025Q4

REPORT INFORMATION
  Report Type: Spontaneous
  Country: RS (occurrence: RS)
  Receive Date: 20251214
  Receipt Date: 20251221
  Transmission Date: 20260117
  Serious: No
  Sender: MERCK SHARP & DOHME LLC
  Company Number: RS-009507513-2360670

PATIENT
  Sex: Male

DRUGS (3)
  1. RALTEGRAVIR [Suspect]
     Active Substance: RALTEGRAVIR
     Indication: Antiretroviral therapy
     Dates: start: 2021, end: 2024
  2. DELSTRIGO [Suspect]
     Active Substance: DORAVIRINE\LAMIVUDINE\TENOFOVIR DISOPROXIL FUMARATE
     Indication: Antiretroviral therapy
     Dates: start: 2024
  3. EFAVIRENZ\EMTRICITABINE\TENOFOVIR DISOPROXIL SUCCINATE [Suspect]
     Active Substance: EFAVIRENZ\EMTRICITABINE\TENOFOVIR DISOPROXIL SUCCINATE
     Route: 065
     Dates: start: 2019

REACTIONS (1)
  - Dyslipidaemia [Unknown]
